FAERS Safety Report 10039139 (Version 1)
Quarter: 2014Q1

REPORT INFORMATION
  Report Type: Spontaneous
  Country: US (occurrence: None)
  Receive Date: 20140306
  Receipt Date: 20140306
  Transmission Date: 20141002
  Serious: Yes (Hospitalization)
  Sender: FDA-Public Use
  Company Number: 163-21880-13073185

PATIENT
  Age: 74 Year
  Sex: Male

DRUGS (9)
  1. REVLIMID [Suspect]
     Indication: PLASMA CELL MYELOMA
     Dosage: 10 MG, 14 IN 14 D, PO
     Route: 048
     Dates: start: 20130516
  2. ACYCLOVIR [Concomitant]
  3. DEXAMETHASONE (DEXAMETHASONE) [Concomitant]
  4. FELODIPINE ER [Concomitant]
  5. FUROSEMIDE (FUROSEMIDE) [Concomitant]
  6. HYDRALAZINE HCL [Concomitant]
  7. HYDROMORPHONE HCL [Concomitant]
  8. LEVEMIR (INSULIN DETEMIR) [Concomitant]
  9. LEVOTHYROXINE SODIUM [Concomitant]

REACTIONS (1)
  - Haematochezia [None]
